FAERS Safety Report 18670190 (Version 15)
Quarter: 2024Q1

REPORT INFORMATION
  Report Type: Spontaneous
  Country: IN (occurrence: IN)
  Receive Date: 20201228
  Receipt Date: 20240305
  Transmission Date: 20240409
  Serious: Yes (Hospitalization, Other)
  Sender: FDA-Public Use
  Company Number: IN-PFIZER INC-2020028242

PATIENT
  Age: 80 Year
  Sex: Male
  Weight: 84.9 kg

DRUGS (8)
  1. INLYTA [Suspect]
     Active Substance: AXITINIB
     Indication: Metastatic renal cell carcinoma
     Dosage: 5 MG, 2X/DAY
     Route: 048
     Dates: start: 20191102
  2. INLYTA [Suspect]
     Active Substance: AXITINIB
     Dosage: 5 MG, 1X/DAY X 3 MONTHS
     Route: 048
  3. INLYTA [Suspect]
     Active Substance: AXITINIB
     Dosage: 5 MG, 1X/DAY (1-0-0)
     Route: 048
  4. ELIQUIS [Concomitant]
     Active Substance: APIXABAN
     Dosage: 2.5 MG, 2X/DAY (1-0-1)
  5. BIFILAC [BACILLUS COAGULANS] [Concomitant]
     Indication: Diarrhoea
     Dosage: 2 DF, 2X/DAY (2-0-2)
  6. LEUPROLIDE ACETATE [Concomitant]
     Active Substance: ISOPROPYL ALCOHOL\LEUPROLIDE ACETATE
     Indication: Prostate cancer
     Dosage: 22.5 MG
     Route: 030
  7. LEUPROLIDE ACETATE [Concomitant]
     Active Substance: ISOPROPYL ALCOHOL\LEUPROLIDE ACETATE
     Dosage: UNK
     Dates: end: 202303
  8. CALCIUM\CHOLECALCIFEROL [Concomitant]
     Active Substance: CALCIUM\CHOLECALCIFEROL
     Dosage: 500 MG, 2X/DAY (1-0-1 X 3 MONTHS)

REACTIONS (22)
  - Hypoxia [Unknown]
  - Diabetes mellitus [Not Recovered/Not Resolved]
  - Parkinson^s disease [Not Recovered/Not Resolved]
  - Cough [Unknown]
  - Hypertension [Unknown]
  - Diarrhoea [Unknown]
  - Weight increased [Unknown]
  - Oxygen saturation decreased [Unknown]
  - Fatigue [Unknown]
  - Mouth ulceration [Unknown]
  - Muscle spasms [Unknown]
  - Hypoacusis [Unknown]
  - Pain in extremity [Unknown]
  - Blood pressure systolic increased [Unknown]
  - Glycosylated haemoglobin increased [Unknown]
  - Blood creatinine increased [Unknown]
  - Haemoglobin abnormal [Unknown]
  - Burning sensation [Unknown]
  - Insomnia [Unknown]
  - Constipation [Unknown]
  - Neoplasm progression [Unknown]
  - Off label use [Unknown]
